FAERS Safety Report 21172429 (Version 1)
Quarter: 2022Q3

REPORT INFORMATION
  Report Type: Spontaneous
  Country: US (occurrence: None)
  Receive Date: 20220803
  Receipt Date: 20220803
  Transmission Date: 20221026
  Serious: Yes (Death)
  Sender: FDA-Public Use
  Company Number: None

PATIENT
  Age: 68 Year
  Sex: Male

DRUGS (9)
  1. OPSUMIT [Suspect]
     Active Substance: MACITENTAN
     Indication: Pulmonary arterial hypertension
     Dosage: FREQUENCY : DAILY;?
     Route: 048
     Dates: start: 20211208, end: 20220605
  2. SILDENAFIL [Concomitant]
  3. PRADAXA [Concomitant]
  4. ATORVASTATIN [Concomitant]
  5. POTASSIUM CHLORIDE [Concomitant]
  6. BUMEX [Concomitant]
     Active Substance: BUMETANIDE
  7. LEVOTHYROXINE [Concomitant]
  8. SPIRONOLACTONE [Concomitant]
  9. ALBUTEROL HFA [Concomitant]

REACTIONS (3)
  - Respiratory distress [None]
  - Ascites [None]
  - Treatment noncompliance [None]

NARRATIVE: CASE EVENT DATE: 20220527
